FAERS Safety Report 10010937 (Version 1)
Quarter: 2014Q1

REPORT INFORMATION
  Report Type: Report from Study
  Country: US (occurrence: US)
  Receive Date: 20140314
  Receipt Date: 20140314
  Transmission Date: 20141002
  Serious: Yes (Hospitalization)
  Sender: FDA-Public Use
  Company Number: US-SA-2014SA031996

PATIENT
  Age: 90 Year
  Sex: Male

DRUGS (16)
  1. DRONEDARONE [Suspect]
     Indication: PRODUCT USED FOR UNKNOWN INDICATION
     Route: 065
  2. DABIGATRAN [Interacting]
     Indication: PRODUCT USED FOR UNKNOWN INDICATION
     Route: 065
  3. LYRICA [Concomitant]
  4. NAPROXEN [Concomitant]
  5. ACTOS [Concomitant]
  6. COREG [Concomitant]
  7. SIMVASTATIN [Concomitant]
  8. ASPIRIN [Concomitant]
  9. TOVIAZ [Concomitant]
  10. LIDODERM [Concomitant]
  11. POTASSIUM CHLORIDE [Concomitant]
  12. FISH OIL [Concomitant]
  13. ZETIA [Concomitant]
  14. TAMSULOSIN HYDROCHLORIDE [Concomitant]
  15. DIGOXIN [Concomitant]
  16. FENTANYL [Concomitant]

REACTIONS (2)
  - Gastrointestinal haemorrhage [Unknown]
  - Drug interaction [Unknown]
